FAERS Safety Report 4878368-1 (Version None)
Quarter: 2005Q4

REPORT INFORMATION
  Report Type: 
  Country: None (occurrence: None)
  Receive Date: 20051206
  Receipt Date: 20050831
  Transmission Date: 20060501
  Serious: No
  Sender: FDA-Public Use
  Company Number: USA0509107247

PATIENT
  Age: 53 Year
  Sex: Female

DRUGS (2)
  1. CYMBALTA [Suspect]
     Indication: PORPHYRIA ACUTE
     Dosage: 120 MG
  2. EFFEXOR [Concomitant]

REACTIONS (5)
  - ABDOMINAL PAIN [None]
  - DELUSION [None]
  - PAIN [None]
  - PSYCHOTIC DISORDER [None]
  - RASH GENERALISED [None]
